FAERS Safety Report 10071605 (Version 1)
Quarter: 2014Q2

REPORT INFORMATION
  Report Type: Spontaneous
  Country: US (occurrence: US)
  Receive Date: 20140410
  Receipt Date: 20140410
  Transmission Date: 20141212
  Serious: Yes (Hospitalization)
  Sender: FDA-Public Use
  Company Number: US-AMGEN-USASP2014024749

PATIENT
  Sex: Female

DRUGS (1)
  1. NEUPOGEN [Suspect]
     Indication: BONE MARROW HARVEST
     Dosage: 780 MCG DAILY FOR TEN DAYS
     Route: 065

REACTIONS (6)
  - Arthralgia [Unknown]
  - Abasia [Unknown]
  - Joint swelling [Unknown]
  - Joint stiffness [Unknown]
  - Gait disturbance [Unknown]
  - Sleep disorder due to general medical condition, insomnia type [Unknown]
